FAERS Safety Report 12304716 (Version 2)
Quarter: 2016Q2

REPORT INFORMATION
  Report Type: Spontaneous
  Country: FR (occurrence: FR)
  Receive Date: 20160426
  Receipt Date: 20160518
  Transmission Date: 20160815
  Serious: Yes (Other)
  Sender: FDA-Public Use
  Company Number: FR-009507513-1604FRA014048

PATIENT
  Age: 64 Year
  Sex: Female

DRUGS (9)
  1. CANCIDAS [Suspect]
     Active Substance: CASPOFUNGIN ACETATE
     Indication: ASPERGILLUS INFECTION
     Dosage: 70 MG, QD
     Route: 042
     Dates: start: 20160321, end: 20160330
  2. CANCIDAS [Suspect]
     Active Substance: CASPOFUNGIN ACETATE
     Indication: ASPERGILLUS INFECTION
     Dosage: 50 MG, QD
     Route: 042
     Dates: start: 20160401
  3. CEFTRIAXONE KABI [Suspect]
     Active Substance: CEFTRIAXONE
     Indication: PYELONEPHRITIS
     Dosage: UNK
     Route: 042
     Dates: start: 20160401, end: 20160409
  4. LOVENOX [Suspect]
     Active Substance: ENOXAPARIN SODIUM
     Indication: PROPHYLAXIS
     Route: 058
  5. LEDERFOLINE [Concomitant]
     Active Substance: LEUCOVORIN CALCIUM
     Route: 048
  6. BACTRIM [Suspect]
     Active Substance: SULFAMETHOXAZOLE\TRIMETHOPRIM
     Indication: PNEUMOCYSTIS JIROVECII PNEUMONIA
     Dosage: UNK
     Route: 042
     Dates: start: 20160315, end: 20160407
  7. INVANZ [Suspect]
     Active Substance: ERTAPENEM SODIUM
     Indication: PYELONEPHRITIS
     Dosage: UNK
     Route: 042
     Dates: start: 20160409
  8. BACTRIM [Suspect]
     Active Substance: SULFAMETHOXAZOLE\TRIMETHOPRIM
     Indication: PNEUMOCYSTIS JIROVECII PNEUMONIA
     Dosage: UNK
     Dates: start: 20160407, end: 20160411
  9. BACTRIM [Suspect]
     Active Substance: SULFAMETHOXAZOLE\TRIMETHOPRIM
     Dosage: UNK
     Route: 048
     Dates: start: 20160411, end: 20160418

REACTIONS (1)
  - Neutropenia [Recovered/Resolved]

NARRATIVE: CASE EVENT DATE: 20160411
